FAERS Safety Report 24156623 (Version 1)
Quarter: 2024Q3

REPORT INFORMATION
  Report Type: Spontaneous
  Country: US (occurrence: None)
  Receive Date: 20240730
  Receipt Date: 20240730
  Transmission Date: 20241016
  Serious: Yes (unspecified)
  Sender: Public
  Company Number: None

PATIENT
  Age: 44 Year
  Sex: Male
  Weight: 98.1 kg

DRUGS (4)
  1. RUXIENCE [Suspect]
     Active Substance: RITUXIMAB-PVVR
     Indication: Glomerulonephritis membranous
     Dosage: OTHER FREQUENCY : WEEKLY;?
     Route: 041
     Dates: start: 20240730, end: 20240730
  2. BENADRYL [Concomitant]
     Active Substance: DIPHENHYDRAMINE HYDROCHLORIDE
     Dates: start: 20240730, end: 20240730
  3. SOLU-MEDROL [Concomitant]
     Active Substance: METHYLPREDNISOLONE SODIUM SUCCINATE
     Dates: start: 20240730, end: 20240730
  4. TYLENOL [Concomitant]
     Active Substance: ACETAMINOPHEN
     Dates: start: 20240730, end: 20240730

REACTIONS (4)
  - Dyspnoea [None]
  - Urticaria [None]
  - Urticaria [None]
  - Infusion related reaction [None]

NARRATIVE: CASE EVENT DATE: 20240730
